FAERS Safety Report 24791882 (Version 3)
Quarter: 2025Q1

REPORT INFORMATION
  Report Type: Report from Study
  Country: CA (occurrence: CA)
  Receive Date: 20241231
  Receipt Date: 20250207
  Transmission Date: 20250409
  Serious: Yes (Other)
  Sender: ABBVIE
  Company Number: CA-ABBVIE-6067101

PATIENT
  Age: 73 Year
  Sex: Female

DRUGS (9)
  1. SKYRIZI [Suspect]
     Active Substance: RISANKIZUMAB-RZAA
     Indication: Psoriasis
     Route: 058
     Dates: start: 20240530, end: 20250109
  2. ENSTILAR [Concomitant]
     Active Substance: BETAMETHASONE DIPROPIONATE\CALCIPOTRIENE HYDRATE
     Indication: Product used for unknown indication
     Route: 061
     Dates: start: 20250110
  3. ENSTILAR [Concomitant]
     Active Substance: BETAMETHASONE DIPROPIONATE\CALCIPOTRIENE HYDRATE
     Indication: Product used for unknown indication
     Route: 061
     Dates: start: 20240229
  4. ENSTILAR [Concomitant]
     Active Substance: BETAMETHASONE DIPROPIONATE\CALCIPOTRIENE HYDRATE
     Indication: Product used for unknown indication
     Route: 061
     Dates: start: 20241108
  5. JAMP ATORVASTATIN [Concomitant]
     Indication: Product used for unknown indication
     Route: 048
     Dates: start: 20241227
  6. BISOPROLOL FUMARATE [Concomitant]
     Active Substance: BISOPROLOL FUMARATE
     Indication: Product used for unknown indication
     Route: 048
     Dates: start: 20241227
  7. APIXABAN [Concomitant]
     Active Substance: APIXABAN
     Indication: Product used for unknown indication
     Route: 048
     Dates: start: 20241227
  8. Mint zolpidem odt [Concomitant]
     Indication: Product used for unknown indication
     Route: 060
     Dates: start: 20241209
  9. Mint zolpidem odt [Concomitant]
     Indication: Product used for unknown indication
     Route: 060
     Dates: start: 20240820

REACTIONS (9)
  - Transient ischaemic attack [Unknown]
  - Heart rate increased [Not Recovered/Not Resolved]
  - Lethargy [Unknown]
  - Palpitations [Unknown]
  - Asthenia [Recovered/Resolved]
  - Dysarthria [Recovered/Resolved]
  - Headache [Recovered/Resolved]
  - Eye pain [Recovered/Resolved]
  - Photosensitivity reaction [Recovered/Resolved]

NARRATIVE: CASE EVENT DATE: 20240101
